FAERS Safety Report 12110543 (Version 1)
Quarter: 2016Q1

REPORT INFORMATION
  Report Type: Not Available
  Country: US (occurrence: US)
  Receive Date: 20160224
  Receipt Date: 20160224
  Transmission Date: 20160526
  Serious: Yes (Hospitalization)
  Sender: FDA-Public Use
  Company Number: US-ANIPHARMA-2016-US-000682

PATIENT
  Age: 8 Year
  Sex: Male

DRUGS (3)
  1. QUETIAPINE [Suspect]
     Active Substance: QUETIAPINE
     Dosage: 200 MG EVERY MORNING, 200 MG AT NOON, 300 MG AT BEDTIME
  2. OXCARBAZEPINE (NON-SPECIFIC) [Suspect]
     Active Substance: OXCARBAZEPINE
     Dosage: 450 MG TWICE DAILY
  3. CLONIDINE. [Concomitant]
     Active Substance: CLONIDINE
     Dosage: 0.1 MG TWICE DAILY

REACTIONS (2)
  - Aggression [Unknown]
  - Drug interaction [Unknown]
